FAERS Safety Report 15623219 (Version 1)
Quarter: 2018Q4

REPORT INFORMATION
  Report Type: Spontaneous
  Country: NL (occurrence: NL)
  Receive Date: 20181115
  Receipt Date: 20181115
  Transmission Date: 20190205
  Serious: Yes (Congenital Anomaly)
  Sender: FDA-Public Use
  Company Number: NL-ALLERGAN-1853513US

PATIENT
  Sex: Female

DRUGS (1)
  1. CITALOPRAM HYDROBROMIDE - BP [Suspect]
     Active Substance: CITALOPRAM HYDROBROMIDE
     Indication: MATERNAL EXPOSURE DURING PREGNANCY
     Dosage: 1DD1
     Route: 064

REACTIONS (2)
  - Talipes [Recovering/Resolving]
  - Foetal exposure during pregnancy [Unknown]
